FAERS Safety Report 11099142 (Version 1)
Quarter: 2015Q2

REPORT INFORMATION
  Report Type: Other
  Country: DE (occurrence: DE)
  Receive Date: 20150508
  Receipt Date: 20150508
  Transmission Date: 20150821
  Serious: Yes (Hospitalization)
  Sender: FDA-Public Use
  Company Number: DE-LUPIN PHARMACEUTICALS INC.-E2B_00003553

PATIENT
  Age: 52 Year
  Sex: Male

DRUGS (16)
  1. LOSARTAN [Suspect]
     Active Substance: LOSARTAN
     Indication: PRODUCT USED FOR UNKNOWN INDICATION
     Route: 065
  2. ATENOLOL. [Concomitant]
     Active Substance: ATENOLOL
     Indication: PRODUCT USED FOR UNKNOWN INDICATION
     Dosage: 50 MG
     Route: 065
  3. CYMBALTA [Interacting]
     Active Substance: DULOXETINE HYDROCHLORIDE
     Dosage: 60 MG
     Route: 065
     Dates: end: 20120606
  4. CYMBALTA [Interacting]
     Active Substance: DULOXETINE HYDROCHLORIDE
     Dosage: 90 MG
     Route: 065
     Dates: start: 20120607, end: 20120806
  5. PANTOZOL [Interacting]
     Active Substance: PANTOPRAZOLE SODIUM
     Indication: PRODUCT USED FOR UNKNOWN INDICATION
     Dosage: 20 MG
     Route: 065
  6. L-THYROXIN [Concomitant]
     Active Substance: LEVOTHYROXINE SODIUM
     Indication: PRODUCT USED FOR UNKNOWN INDICATION
     Route: 065
  7. SIMVAHEXAL [Concomitant]
     Active Substance: SIMVASTATIN
     Indication: PRODUCT USED FOR UNKNOWN INDICATION
     Dosage: 20 MG
     Route: 065
  8. METFORMIN [Concomitant]
     Active Substance: METFORMIN HYDROCHLORIDE
     Indication: PRODUCT USED FOR UNKNOWN INDICATION
     Dosage: 1000 MG
     Route: 065
  9. BECLOMET [Concomitant]
     Indication: PRODUCT USED FOR UNKNOWN INDICATION
     Route: 065
  10. LYRICA [Concomitant]
     Active Substance: PREGABALIN
     Indication: PRODUCT USED FOR UNKNOWN INDICATION
     Dosage: 200 MG
     Route: 065
  11. CYMBALTA [Interacting]
     Active Substance: DULOXETINE HYDROCHLORIDE
     Indication: PRODUCT USED FOR UNKNOWN INDICATION
     Dosage: 30 MG
     Route: 065
     Dates: start: 20120521
  12. CYMBALTA [Interacting]
     Active Substance: DULOXETINE HYDROCHLORIDE
     Dosage: 30 MG
     Route: 065
  13. NACL [Concomitant]
     Active Substance: SODIUM CHLORIDE
     Indication: PRODUCT USED FOR UNKNOWN INDICATION
     Dosage: 09 DOSAGE FORMS
     Route: 065
  14. CYMBALTA [Interacting]
     Active Substance: DULOXETINE HYDROCHLORIDE
     Dosage: 60 MG
     Route: 065
     Dates: start: 20120809, end: 20120825
  15. MACROGOL [Interacting]
     Active Substance: POLYETHYLENE GLYCOLS
     Indication: PRODUCT USED FOR UNKNOWN INDICATION
     Dosage: 3 DOSAGE FORMS
     Route: 065
     Dates: start: 2011
  16. NACL [Concomitant]
     Active Substance: SODIUM CHLORIDE
     Route: 048

REACTIONS (2)
  - Hyponatraemia [Not Recovered/Not Resolved]
  - Drug interaction [Unknown]

NARRATIVE: CASE EVENT DATE: 20120806
